FAERS Safety Report 14006926 (Version 1)
Quarter: 2017Q3

REPORT INFORMATION
  Report Type: Spontaneous
  Country: US (occurrence: None)
  Receive Date: 20170922
  Receipt Date: 20170922
  Transmission Date: 20171128
  Serious: No
  Sender: FDA-Public Use
  Company Number: None

PATIENT
  Age: 50 Year
  Sex: Male

DRUGS (1)
  1. IMATINIB MES [Suspect]
     Active Substance: IMATINIB MESYLATE

REACTIONS (3)
  - Product substitution issue [None]
  - Gastrointestinal neoplasm [None]
  - Neoplasm recurrence [None]

NARRATIVE: CASE EVENT DATE: 20170922
